FAERS Safety Report 9668451 (Version 7)
Quarter: 2019Q1

REPORT INFORMATION
  Report Type: Report from Study
  Country: CA (occurrence: CA)
  Receive Date: 20131105
  Receipt Date: 20190129
  Transmission Date: 20190418
  Serious: Yes (Hospitalization, Other)
  Sender: FDA-Public Use
  Company Number: CA-ROCHE-1299207

PATIENT
  Age: 73 Year
  Sex: Male
  Weight: 80.7 kg

DRUGS (20)
  1. RITUXAN [Suspect]
     Active Substance: RITUXIMAB
     Indication: RHEUMATOID ARTHRITIS
     Route: 042
     Dates: start: 20110321
  2. SYMBICORT [Concomitant]
     Active Substance: BUDESONIDE\FORMOTEROL FUMARATE DIHYDRATE
     Dosage: 1 PUFF 2X DAY
     Route: 065
  3. ASPIRIN. [Concomitant]
     Active Substance: ASPIRIN
  4. PLAQUENIL [Concomitant]
     Active Substance: HYDROXYCHLOROQUINE SULFATE
  5. DIPHENHYDRAMINE HCL [Concomitant]
     Active Substance: DIPHENHYDRAMINE HYDROCHLORIDE
     Route: 048
  6. METHYLPREDNISOLONE. [Concomitant]
     Active Substance: METHYLPREDNISOLONE
     Route: 042
  7. NASACORT [Concomitant]
     Active Substance: TRIAMCINOLONE ACETONIDE
  8. TYLENOL [Concomitant]
     Active Substance: ACETAMINOPHEN
     Indication: PREMEDICATION
     Route: 048
     Dates: start: 20110913
  9. ATROVENT [Concomitant]
     Active Substance: IPRATROPIUM BROMIDE
  10. ACETAMINOPHEN. [Concomitant]
     Active Substance: ACETAMINOPHEN
     Route: 048
  11. RITUXAN [Suspect]
     Active Substance: RITUXIMAB
     Dosage: THIS IS 23 INFUSION?NEXT INFUSION WAS SCHEDULED ON 01/AUG/2017
     Route: 042
     Dates: start: 20170718
  12. PROPRANOLOL [Concomitant]
     Active Substance: PROPRANOLOL HYDROCHLORIDE
  13. BENADRYL [Concomitant]
     Active Substance: DIPHENHYDRAMINE HYDROCHLORIDE
     Indication: PREMEDICATION
     Route: 048
     Dates: start: 20110913
  14. CARVEDILOL. [Concomitant]
     Active Substance: CARVEDILOL
  15. WARFARIN [Concomitant]
     Active Substance: WARFARIN
  16. LOSARTAN. [Concomitant]
     Active Substance: LOSARTAN
  17. RITUXAN [Suspect]
     Active Substance: RITUXIMAB
     Dosage: RETREATMENT
     Route: 042
     Dates: start: 20110913
  18. LIPITOR [Concomitant]
     Active Substance: ATORVASTATIN CALCIUM
  19. AMLODIPINE [Concomitant]
     Active Substance: AMLODIPINE BESYLATE
     Indication: BLOOD PRESSURE MEASUREMENT
     Route: 065
     Dates: start: 20161024
  20. RITUXAN [Suspect]
     Active Substance: RITUXIMAB
     Dosage: START DATE-UNKNOWN
     Route: 042

REACTIONS (11)
  - Influenza [Unknown]
  - Dyslipidaemia [Unknown]
  - Body temperature decreased [Unknown]
  - Hydrocephalus [Unknown]
  - Bronchitis [Recovered/Resolved]
  - Viral sinusitis [Not Recovered/Not Resolved]
  - Fatigue [Recovering/Resolving]
  - Blood pressure increased [Unknown]
  - Amnesia [Unknown]
  - Aortic aneurysm [Not Recovered/Not Resolved]
  - Weight increased [Unknown]

NARRATIVE: CASE EVENT DATE: 2014
